FAERS Safety Report 6085558-1 (Version None)
Quarter: 2009Q1

REPORT INFORMATION
  Report Type: 
  Country: None (occurrence: None)
  Receive Date: 20090220
  Receipt Date: 20081210
  Transmission Date: 20090719
  Serious: Yes (Other)
  Sender: FDA-Public Use
  Company Number: US-PFIZER INC-2008098979

PATIENT
  Sex: Female

DRUGS (13)
  1. CHANTIX [Suspect]
     Indication: SMOKING CESSATION THERAPY
     Dosage: UNK
     Route: 048
     Dates: start: 20081003
  2. ELAVIL [Concomitant]
     Indication: DEPRESSION
  3. LARIAM [Concomitant]
  4. RESTORIL [Concomitant]
     Indication: ANXIETY
  5. TYLENOL [Concomitant]
  6. ACETYLSALICYLIC ACID SRT [Concomitant]
  7. ALEVE [Concomitant]
  8. LIBRIUM [Concomitant]
     Indication: ANXIETY
  9. ALL OTHER THERAPEUTIC PRODUCTS [Concomitant]
  10. LEXAPRO [Concomitant]
     Dosage: UNK
  11. ANXIOLYTICS [Concomitant]
     Dosage: UNK
  12. TYLENOL W/ CODEINE NO. 4 [Concomitant]
     Indication: BACK PAIN
  13. ADVAIR DISKUS 100/50 [Concomitant]

REACTIONS (6)
  - ANXIETY [None]
  - DEPRESSION [None]
  - DRUG DOSE OMISSION [None]
  - HOMICIDAL IDEATION [None]
  - MENTAL IMPAIRMENT [None]
  - SELF-INJURIOUS IDEATION [None]
